FAERS Safety Report 6237602-6 (Version None)
Quarter: 2009Q2

REPORT INFORMATION
  Report Type: 
  Country: None (occurrence: None)
  Receive Date: 20090619
  Receipt Date: 20090610
  Transmission Date: 20091009
  Serious: Yes (Hospitalization)
  Sender: FDA-Public Use
  Company Number: ES-MERCK-0906ESP00020

PATIENT

DRUGS (4)
  1. SINGULAIR [Suspect]
     Indication: ASTHMA
     Route: 048
  2. SINGULAIR [Suspect]
     Indication: FOOD ALLERGY
     Route: 048
  3. BUDESONIDE [Concomitant]
     Indication: ASTHMA
     Route: 065
  4. BUDESONIDE [Concomitant]
     Indication: FOOD ALLERGY
     Route: 065

REACTIONS (1)
  - ASTHMA [None]
